FAERS Safety Report 7357362-5 (Version None)
Quarter: 2011Q1

REPORT INFORMATION
  Report Type: 
  Country: None (occurrence: None)
  Receive Date: 20110317
  Receipt Date: 20110317
  Transmission Date: 20110831
  Serious: Yes (Other)
  Sender: FDA-Public Use
  Company Number: HU-ELI_LILLY_AND_COMPANY-HU201006007197

PATIENT
  Sex: Female
  Weight: 105 kg

DRUGS (22)
  1. EMETRON [Concomitant]
     Indication: PROPHYLAXIS
     Dosage: 8 MG, UNK
     Dates: start: 20100505, end: 20100509
  2. GEMCITABINE HYDROCHLORIDE [Suspect]
     Dosage: 2487 MG, OTHER
     Route: 042
     Dates: start: 20100623
  3. FUROSEMIDE [Concomitant]
     Indication: HYPERTENSION
     Dates: start: 20091203
  4. EMETRON [Concomitant]
     Dates: start: 20100413, end: 20100419
  5. OTHER PHARMA COMPANY INV DRUG [Suspect]
     Indication: NON-SMALL CELL LUNG CANCER
     Dosage: 800 MG, 2 IN 3 WEEKS
     Route: 042
     Dates: start: 20100325, end: 20100615
  6. TENOX [Concomitant]
     Indication: HYPERTENSION
     Dates: start: 20100114
  7. ASPIRIN [Concomitant]
     Indication: PROPHYLAXIS
     Dates: start: 20091203
  8. NOVIFORM [Concomitant]
     Indication: HYPERTONIA
     Dates: start: 20100114
  9. SPIRIVA [Concomitant]
     Indication: CHRONIC OBSTRUCTIVE PULMONARY DISEASE
     Dates: start: 20100324
  10. OTHER PHARMA COMPANY INV DRUG [Suspect]
     Dosage: 800 MG, 2 IN 3 WEEKS
     Route: 042
     Dates: start: 20100623
  11. POTASSIUM [Concomitant]
     Indication: HYPERTENSION
     Dates: start: 20091203
  12. MORFIN [Concomitant]
     Indication: PAIN
     Dates: start: 20100122
  13. ATIMOS [Concomitant]
     Indication: CHRONIC OBSTRUCTIVE PULMONARY DISEASE
     Dates: start: 20100324
  14. HYDROCORTISON [Concomitant]
     Indication: DERMATITIS ACNEIFORM
     Dates: start: 20100505
  15. EMETRON [Concomitant]
     Dates: start: 20100505, end: 20100505
  16. GEMCITABINE HYDROCHLORIDE [Suspect]
     Indication: NON-SMALL CELL LUNG CANCER
     Dosage: 2487 MG, 2 IN 3 WEEKS
     Route: 042
     Dates: start: 20100325
  17. CISPLATIN [Suspect]
     Indication: NON-SMALL CELL LUNG CANCER
     Dosage: 150 MG, 1 IN 3 WEEKS
     Route: 042
     Dates: start: 20100325, end: 20100615
  18. CISPLATIN [Suspect]
     Dosage: 150 MG, 1 IN 3 WEEKS
     Route: 042
     Dates: start: 20100623
  19. METFOGAMMA [Concomitant]
     Indication: DIABETES MELLITUS
     Dates: start: 20091203
  20. LANSOPRAZOLE [Concomitant]
     Indication: NAUSEA
     Dates: start: 20100420
  21. SALBUTAMOL [Concomitant]
     Indication: CHRONIC OBSTRUCTIVE PULMONARY DISEASE
     Dates: start: 20100324
  22. EMETRON [Concomitant]
     Dates: start: 20100325, end: 20100329

REACTIONS (2)
  - HYPOMAGNESAEMIA [None]
  - HYPOCALCAEMIA [None]
